FAERS Safety Report 10380940 (Version 1)
Quarter: 2014Q3

REPORT INFORMATION
  Report Type: Spontaneous
  Country: US (occurrence: US)
  Receive Date: 20140813
  Receipt Date: 20140813
  Transmission Date: 20150326
  Serious: No
  Sender: FDA-Public Use
  Company Number: US-009507513-1406USA013387

PATIENT
  Age: 71 Year
  Sex: Male

DRUGS (1)
  1. COPPERTONE ULTRAGUARD SUNSCREEN SPF 100 PLUS [Suspect]
     Active Substance: AVOBENZONE\HOMOSALATE\OCTISALATE\OCTOCRYLENE\OXYBENZONE
     Indication: PROPHYLAXIS AGAINST SOLAR RADIATION
     Dosage: UNK, UNKNOWN
     Route: 061
     Dates: start: 20140614

REACTIONS (4)
  - Lacrimation increased [Unknown]
  - Rhinorrhoea [Unknown]
  - Eye irritation [Unknown]
  - Accidental exposure to product [Unknown]

NARRATIVE: CASE EVENT DATE: 20140614
